FAERS Safety Report 7099123-0 (Version None)
Quarter: 2010Q4

REPORT INFORMATION
  Report Type: 
  Country: None (occurrence: None)
  Receive Date: 20101112
  Receipt Date: 20101105
  Transmission Date: 20110411
  Serious: Yes (Hospitalization)
  Sender: FDA-Public Use
  Company Number: B0678290A

PATIENT
  Sex: Male

DRUGS (2)
  1. ARTIST [Suspect]
     Indication: CARDIOMYOPATHY
     Dosage: 2.5MG PER DAY
     Route: 048
     Dates: start: 20100814, end: 20100828
  2. CRAVIT [Suspect]
     Indication: PYOTHORAX
     Dosage: 500MG PER DAY
     Route: 048
     Dates: start: 20100814, end: 20100820

REACTIONS (1)
  - STEVENS-JOHNSON SYNDROME [None]
